FAERS Safety Report 7006379-9 (Version None)
Quarter: 2010Q3

REPORT INFORMATION
  Report Type: 
  Country: None (occurrence: None)
  Receive Date: 20100909
  Receipt Date: 20100903
  Transmission Date: 20110219
  Serious: Yes (Death, Life-Threatening, Other)
  Sender: FDA-Public Use
  Company Number: 2010SP047414

PATIENT
  Age: 74 Year
  Sex: Female
  Weight: 59.1 kg

DRUGS (63)
  1. TEMODAL [Suspect]
     Indication: ANAPLASTIC ASTROCYTOMA
     Dosage: 75 MG/M2; QD; PO, 150 MG/M2; QD; PO, 200 MG/M2; QD; PO, 100 MG/M2; QD; PO
     Route: 048
     Dates: start: 20090601, end: 20090712
  2. TEMODAL [Suspect]
     Indication: ANAPLASTIC ASTROCYTOMA
     Dosage: 75 MG/M2; QD; PO, 150 MG/M2; QD; PO, 200 MG/M2; QD; PO, 100 MG/M2; QD; PO
     Route: 048
     Dates: start: 20090810, end: 20090814
  3. TEMODAL [Suspect]
     Indication: ANAPLASTIC ASTROCYTOMA
     Dosage: 75 MG/M2; QD; PO, 150 MG/M2; QD; PO, 200 MG/M2; QD; PO, 100 MG/M2; QD; PO
     Route: 048
     Dates: start: 20090914, end: 20090918
  4. TEMODAL [Suspect]
     Indication: ANAPLASTIC ASTROCYTOMA
     Dosage: 75 MG/M2; QD; PO, 150 MG/M2; QD; PO, 200 MG/M2; QD; PO, 100 MG/M2; QD; PO
     Route: 048
     Dates: start: 20091012, end: 20091016
  5. TEMODAL [Suspect]
     Indication: ANAPLASTIC ASTROCYTOMA
     Dosage: 75 MG/M2; QD; PO, 150 MG/M2; QD; PO, 200 MG/M2; QD; PO, 100 MG/M2; QD; PO
     Route: 048
     Dates: start: 20091109, end: 20091113
  6. BETAMETHASONE [Suspect]
     Indication: CEREBRAL ATROPHY
     Dosage: ; PO
     Route: 048
     Dates: start: 20090808, end: 20090811
  7. BETAMETHASONE [Suspect]
     Indication: CEREBRAL ATROPHY
     Dosage: ; PO
     Route: 048
     Dates: start: 20090901, end: 20090909
  8. BETAMETHASONE [Suspect]
     Indication: CEREBRAL ATROPHY
     Dosage: ; PO
     Route: 048
     Dates: start: 20091014, end: 20091024
  9. BETAMETHASONE [Suspect]
     Indication: CEREBRAL ATROPHY
     Dosage: ; IV
     Route: 042
     Dates: start: 20090820, end: 20090831
  10. CORTRIL [Suspect]
     Indication: CEREBRAL ATROPHY
     Dosage: ; PO
     Route: 048
     Dates: start: 20090901, end: 20090922
  11. CORTRIL [Suspect]
     Indication: CEREBRAL ATROPHY
     Dosage: ; PO
     Route: 048
     Dates: start: 20091014, end: 20091110
  12. BETAMETHASONE SODIUM PHOSPHATE [Suspect]
     Indication: CEREBRAL ATROPHY
     Dosage: ; IV
     Route: 042
     Dates: start: 20090825, end: 20090829
  13. BETAMETHASONE SODIUM PHOSPHATE [Suspect]
     Indication: CEREBRAL ATROPHY
     Dosage: ; IV
     Route: 042
     Dates: start: 20090820, end: 20090831
  14. BETAMETHASONE SODIUM PHOSPHATE [Suspect]
     Indication: CEREBRAL ATROPHY
     Dosage: ; IV
     Route: 042
     Dates: start: 20090910, end: 20090925
  15. BACTRIM [Concomitant]
  16. SELOKEN L [Concomitant]
  17. EBRANTIL [Concomitant]
  18. RAMELTEON [Concomitant]
  19. DEPAKENE [Concomitant]
  20. PRIMPERAN TAB [Concomitant]
  21. LANSOPRAZOLE [Concomitant]
  22. OLMETEC [Concomitant]
  23. RINDERON-VG [Concomitant]
  24. DECADRON [Concomitant]
  25. UBRETID [Concomitant]
  26. MYSLEE [Concomitant]
  27. GABAPEN [Concomitant]
  28. AMOXICILLIN [Concomitant]
  29. MYSTAN [Concomitant]
  30. GENTAMICIN [Concomitant]
  31. SOLDEM (3A MAINTENANCE MEDIUM 3) [Concomitant]
  32. HEPAFLUSH [Concomitant]
  33. HORIZON [Concomitant]
  34. PHENYTOIN SODIUM [Concomitant]
  35. LACTEC (LACTATED RINGER'S SOLUTION) [Concomitant]
  36. ZOSYN [Concomitant]
  37. MOBENZOCIN [Concomitant]
  38. VANCOMYCIN HYDROCHLORIDE [Concomitant]
  39. CRAVIT (LEVOFLOXACIN HYDRATE) [Concomitant]
  40. SODIUM CHLORIDE [Concomitant]
  41. EXCEGRAN [Concomitant]
  42. LACTULOSE [Concomitant]
  43. TEGRETOL [Concomitant]
  44. PHENOBARBITAL TAB [Concomitant]
  45. ENTERONON R (ANTIBIOTICS-RESISTANT LACTIC ACID BACTERIAE) [Concomitant]
  46. AMINOLEBAN (AMINO ACID PREPARATIONS FOR HEPATIC INSUFFICIENCY 1) [Concomitant]
  47. STRONGER NEO-MINOPHAGEN C [Concomitant]
  48. SEFIROM [Concomitant]
  49. PROHEPARUM [Concomitant]
  50. JUZEN-TAIHO-TO [Concomitant]
  51. PREDOPA [Concomitant]
  52. ATARAX [Concomitant]
  53. SEFMAZON [Concomitant]
  54. SOLYUGEN G (ACETATED RINGER'S SOLUTION WITH GLUCOSE 1) [Concomitant]
  55. PENTCILLIN [Concomitant]
  56. SOLDEM 3A (MAINTENANCE MEDIUM 3) [Concomitant]
  57. ASPARA (L-ASPARTATE POTASSIUM) [Concomitant]
  58. ISOTONIC SODIUM CHLORIDE SOLUTION [Concomitant]
  59. ISOTONIC SODIUM CHLORIDE [Concomitant]
  60. WATER FOR INJECTIONS [Concomitant]
  61. AMLODIN CO [Concomitant]
  62. MUCOSIL-10 [Concomitant]
  63. ISOTONIC SODIUM CHLORIDE SOLUTION [Concomitant]

REACTIONS (10)
  - ALTERED STATE OF CONSCIOUSNESS [None]
  - ANAEMIA [None]
  - CATHETER SITE INFECTION [None]
  - CEREBRAL ATROPHY [None]
  - HYPOALBUMINAEMIA [None]
  - HYPOPHAGIA [None]
  - OLIGURIA [None]
  - OROPHARYNGEAL CANDIDIASIS [None]
  - PLATELET COUNT DECREASED [None]
  - THROMBOCYTOPENIA [None]
